FAERS Safety Report 8837977 (Version 2)
Quarter: 2012Q4

REPORT INFORMATION
  Report Type: 
  Country: US (occurrence: US)
  Receive Date: 20121012
  Receipt Date: 20121120
  Transmission Date: 20130627
  Serious: Yes (Death, Hospitalization)
  Sender: FDA-Public Use
  Company Number: US-B.I. PHARMACEUTICALS,INC./RIDGEFIELD-2012-BP-25166BP

PATIENT
  Age: 88 Year
  Sex: Male

DRUGS (5)
  1. PRADAXA [Suspect]
     Indication: ATRIAL FIBRILLATION
     Dosage: 150 mg
  2. ASPIRIN [Concomitant]
     Dosage: 81 mg
  3. BETA BLOCKERS [Concomitant]
  4. METOPROLOL [Concomitant]
  5. STATINS [Concomitant]

REACTIONS (9)
  - Cardiac arrest [Fatal]
  - Pre-existing disease [Fatal]
  - Hip fracture [Unknown]
  - Fall [Unknown]
  - Pelvic fracture [Unknown]
  - Foot fracture [Unknown]
  - Pelvic haemorrhage [Unknown]
  - Urine output decreased [Unknown]
  - Hypotension [Unknown]
